FAERS Safety Report 8135676-9 (Version None)
Quarter: 2012Q1

REPORT INFORMATION
  Report Type: 
  Country: None (occurrence: None)
  Receive Date: 20120214
  Receipt Date: 20120202
  Transmission Date: 20120608
  Serious: Yes (Other)
  Sender: FDA-Public Use
  Company Number: US-SANOFI-AVENTIS-2012SA007458

PATIENT
  Age: 83 Year
  Sex: Female
  Weight: 52.1 kg

DRUGS (1)
  1. PLAVIX [Suspect]
     Route: 048
     Dates: start: 20111101, end: 20120101

REACTIONS (7)
  - APHAGIA [None]
  - CONSTIPATION [None]
  - WEIGHT DECREASED [None]
  - ABDOMINAL PAIN UPPER [None]
  - HAEMATOCHEZIA [None]
  - DECREASED APPETITE [None]
  - DYSGEUSIA [None]
